FAERS Safety Report 9825894 (Version 3)
Quarter: 2015Q1

REPORT INFORMATION
  Report Type: Spontaneous
  Country: US (occurrence: None)
  Receive Date: 20140115
  Receipt Date: 20150116
  Transmission Date: 20150721
  Serious: Yes (Hospitalization, Other)
  Sender: FDA-Public Use
  Company Number: 2012-003328

PATIENT
  Age: 64 Year
  Sex: Female
  Weight: 50.9 kg

DRUGS (17)
  1. ACTONEL [Suspect]
     Active Substance: RISEDRONATE SODIUM
     Indication: OSTEOPOROSIS
     Route: 048
     Dates: start: 200411, end: 20091119
  2. ACTONEL [Suspect]
     Active Substance: RISEDRONATE SODIUM
     Indication: OSTEOPENIA
     Route: 048
     Dates: start: 200411, end: 20091119
  3. FOSAMAX [Suspect]
     Active Substance: ALENDRONATE SODIUM
     Indication: OSTEOPOROSIS PROPHYLAXIS
     Route: 048
     Dates: start: 199909, end: 200411
  4. BONIVA [Suspect]
     Active Substance: IBANDRONATE SODIUM
     Indication: OSTEOPOROSIS
     Route: 048
     Dates: start: 20101025, end: 2012
  5. FOSAMAX [Suspect]
     Active Substance: ALENDRONATE SODIUM
     Route: 048
     Dates: start: 199909, end: 200411
  6. SIMVASTATIN (SIMVASTATIN) [Concomitant]
     Active Substance: SIMVASTATIN
  7. ACTONEL [Suspect]
     Active Substance: RISEDRONATE SODIUM
     Indication: OSTEOPOROSIS PROPHYLAXIS
     Route: 048
     Dates: start: 200411, end: 20091119
  8. FOSAMAX [Suspect]
     Active Substance: ALENDRONATE SODIUM
     Indication: OSTEOPENIA
     Route: 048
     Dates: start: 199909, end: 200411
  9. BONIVA [Suspect]
     Active Substance: IBANDRONATE SODIUM
     Indication: OSTEOPENIA
     Route: 048
     Dates: start: 20101025, end: 2012
  10. FOSAMAX [Suspect]
     Active Substance: ALENDRONATE SODIUM
     Indication: OSTEOPOROSIS
     Route: 048
     Dates: start: 199909, end: 200411
  11. ATENOLOL (ATENOLOL) [Concomitant]
     Active Substance: ATENOLOL
  12. VYTORIN [Concomitant]
     Active Substance: EZETIMIBE\SIMVASTATIN
  13. HYZAAR (HYDROCHLOROTHIAZIDE, LOSARTAN, POTASSIUM) [Concomitant]
  14. DIOVAN HCT (HYDROCHLOROTHIAZIDE, VALSARTAN) [Concomitant]
  15. ASPIRIN. [Concomitant]
     Active Substance: ASPIRIN
  16. BONIVA [Suspect]
     Active Substance: IBANDRONATE SODIUM
     Indication: OSTEOPOROSIS PROPHYLAXIS
     Route: 048
     Dates: start: 20101025, end: 2012
  17. CALCIUM PLUS D3 (CALCIUM, COLECALCIFEROL) [Concomitant]

REACTIONS (13)
  - Low turnover osteopathy [None]
  - Femur fracture [None]
  - Wound abscess [None]
  - Exostosis [None]
  - Rib fracture [None]
  - Muscular weakness [None]
  - Rotator cuff syndrome [None]
  - Groin pain [None]
  - Fracture displacement [None]
  - Pain [None]
  - Dysphagia [None]
  - Injury [None]
  - Fall [None]

NARRATIVE: CASE EVENT DATE: 2008
